FAERS Safety Report 7119213-3 (Version None)
Quarter: 2010Q4

REPORT INFORMATION
  Report Type: 
  Country: None (occurrence: None)
  Receive Date: 20101123
  Receipt Date: 20101117
  Transmission Date: 20110411
  Serious: Yes (Other)
  Sender: FDA-Public Use
  Company Number: US-BAYER-201018734NA

PATIENT
  Age: 61 Year
  Sex: Male

DRUGS (9)
  1. MAGNEVIST [Suspect]
     Indication: IMAGING PROCEDURE
     Dates: start: 20081003, end: 20081003
  2. OMNISCAN [Suspect]
     Indication: IMAGING PROCEDURE
  3. OPTIMARK [Suspect]
     Indication: IMAGING PROCEDURE
  4. MULTIHANCE [Suspect]
     Indication: IMAGING PROCEDURE
  5. PROHANCE [Suspect]
     Indication: IMAGING PROCEDURE
  6. METOPROLOL [Concomitant]
     Dates: start: 20100901
  7. THEOPHYLLINE [Concomitant]
  8. SPIRIVA [Concomitant]
  9. SYMBICORT [Concomitant]

REACTIONS (12)
  - ARTHRALGIA [None]
  - DEFORMITY [None]
  - DRY SKIN [None]
  - FIBROSIS [None]
  - GENERAL PHYSICAL HEALTH DETERIORATION [None]
  - MOBILITY DECREASED [None]
  - NEPHROGENIC SYSTEMIC FIBROSIS [None]
  - PAIN [None]
  - PRURITUS [None]
  - RASH [None]
  - SCAR [None]
  - SKIN INDURATION [None]
